FAERS Safety Report 21397565 (Version 7)
Quarter: 2024Q2

REPORT INFORMATION
  Report Type: Spontaneous
  Country: DE (occurrence: DE)
  Receive Date: 20220930
  Receipt Date: 20240421
  Transmission Date: 20240716
  Serious: Yes (Hospitalization, Other)
  Sender: FDA-Public Use
  Company Number: DE-002147023-NVSC2022DE203493

PATIENT
  Sex: Female

DRUGS (2)
  1. CREON [Suspect]
     Active Substance: PANCRELIPASE AMYLASE\PANCRELIPASE LIPASE\PANCRELIPASE PROTEASE
     Indication: Eating disorder
     Dosage: KREON 25000
     Route: 048
     Dates: start: 2022
  2. VOLTAREN [Suspect]
     Active Substance: DICLOFENAC SODIUM
     Indication: Pain
     Dosage: UNK
     Route: 065

REACTIONS (9)
  - Asthenia [Not Recovered/Not Resolved]
  - Contusion [Unknown]
  - Gastric cancer [Unknown]
  - Blood potassium decreased [Unknown]
  - Autoimmune disorder [Not Recovered/Not Resolved]
  - Platelet count decreased [Unknown]
  - Hypophagia [Recovering/Resolving]
  - Eating disorder [Recovering/Resolving]
  - Pain [Unknown]

NARRATIVE: CASE EVENT DATE: 20220101
